FAERS Safety Report 5060777-1 (Version None)
Quarter: 2006Q3

REPORT INFORMATION
  Report Type: 
  Country: None (occurrence: None)
  Receive Date: 20060719
  Receipt Date: 20060719
  Transmission Date: 20061208
  Serious: Yes (Hospitalization)
  Sender: FDA-Public Use
  Company Number: None

PATIENT
  Sex: Male

DRUGS (14)
  1. HUMULIN 70/30 [Suspect]
     Dosage: 30 UNITS/ 6 UNITS AM/PM SQ
     Route: 058
  2. WARFARIN SODIUM [Concomitant]
  3. TERAZOSIN HCL [Concomitant]
  4. GABAPENTIN [Concomitant]
  5. CYANOCOBALAMIN [Concomitant]
  6. FUROSEMIDE [Concomitant]
  7. ASPIRIN [Concomitant]
  8. SULFASALAZINE [Concomitant]
  9. OMEPRAZOLE [Concomitant]
  10. METOPROLOL [Concomitant]
  11. LISINOPRIL [Concomitant]
  12. DIGOXIN [Concomitant]
  13. CLOPIDOGREL [Concomitant]
  14. OXYCODONE AND ACETAMINOPHEN [Concomitant]

REACTIONS (2)
  - BLOOD GLUCOSE DECREASED [None]
  - MENTAL STATUS CHANGES [None]
